FAERS Safety Report 7958393-4 (Version None)
Quarter: 2011Q4

REPORT INFORMATION
  Report Type: 
  Country: None (occurrence: None)
  Receive Date: 20111205
  Receipt Date: 20111128
  Transmission Date: 20120403
  Serious: Yes (Other)
  Sender: FDA-Public Use
  Company Number: JP-MERCK-1111USA03561

PATIENT
  Age: 38 Year
  Sex: Female

DRUGS (2)
  1. XYLOCAINE [Concomitant]
     Route: 065
     Dates: start: 20111121
  2. PEPCID RPD [Suspect]
     Route: 048
     Dates: start: 20111120

REACTIONS (1)
  - ANAPHYLACTOID REACTION [None]
